FAERS Safety Report 7095660-3 (Version None)
Quarter: 2010Q4

REPORT INFORMATION
  Report Type: 
  Country: None (occurrence: None)
  Receive Date: 20101111
  Receipt Date: 20090204
  Transmission Date: 20110411
  Serious: No
  Sender: FDA-Public Use
  Company Number: US-KINGPHARMUSA00001-K200900114

PATIENT
  Age: 53 Year
  Sex: Female

DRUGS (3)
  1. SKELAXIN [Suspect]
     Indication: BACK PAIN
     Dosage: 800 MG, TID
     Route: 048
     Dates: start: 20090126, end: 20080128
  2. PREMPRO [Concomitant]
  3. MOTRIN [Concomitant]
     Indication: BACK PAIN

REACTIONS (1)
  - RASH [None]
